FAERS Safety Report 18113184 (Version 2)
Quarter: 2020Q3

REPORT INFORMATION
  Report Type: Spontaneous
  Country: US (occurrence: US)
  Receive Date: 20200805
  Receipt Date: 20200909
  Transmission Date: 20201103
  Serious: Yes (Other)
  Sender: FDA-Public Use
  Company Number: US-SUN PHARMACEUTICAL INDUSTRIES LTD-2020R1-255161

PATIENT
  Age: 41 Year
  Sex: Female

DRUGS (4)
  1. HYDROXYCHLOROQUINE [Suspect]
     Active Substance: HYDROXYCHLOROQUINE
     Indication: PRODUCT USED FOR UNKNOWN INDICATION
     Dosage: UNK
     Route: 065
  2. AZITHROMYCIN ANHYDROUS. [Suspect]
     Active Substance: AZITHROMYCIN ANHYDROUS
     Indication: PRODUCT USED FOR UNKNOWN INDICATION
     Dosage: UNK
     Route: 065
  3. TOCILIZUMAB. [Suspect]
     Active Substance: TOCILIZUMAB
     Indication: PRODUCT USED FOR UNKNOWN INDICATION
     Dosage: TWO DOSES
     Route: 065
  4. CEFTRIAXONE. [Suspect]
     Active Substance: CEFTRIAXONE
     Indication: SUPERINFECTION BACTERIAL
     Dosage: UNK
     Route: 065

REACTIONS (8)
  - Exposure during pregnancy [Not Recovered/Not Resolved]
  - Acute kidney injury [Unknown]
  - Acute respiratory failure [Unknown]
  - Foetal death [Unknown]
  - Sepsis [Unknown]
  - HELLP syndrome [Unknown]
  - Eclampsia [Unknown]
  - Cerebral infarction [Unknown]
